FAERS Safety Report 17125624 (Version 1)
Quarter: 2019Q4

REPORT INFORMATION
  Report Type: Report from Study
  Country: GB (occurrence: GB)
  Receive Date: 20191208
  Receipt Date: 20191208
  Transmission Date: 20200122
  Serious: Yes (Other)
  Sender: FDA-Public Use
  Company Number: NVSC2019GB060580

PATIENT
  Sex: Male

DRUGS (1)
  1. HYRIMOZ [Suspect]
     Active Substance: ADALIMUMAB-ADAZ
     Indication: PSORIATIC ARTHROPATHY
     Dosage: UNK, Q2W
     Route: 065
     Dates: start: 20190909

REACTIONS (2)
  - Psoriatic arthropathy [Not Recovered/Not Resolved]
  - Lower respiratory tract infection [Unknown]
